FAERS Safety Report 11605018 (Version 9)
Quarter: 2020Q4

REPORT INFORMATION
  Report Type: Spontaneous
  Country: US (occurrence: US)
  Receive Date: 20151007
  Receipt Date: 20201119
  Transmission Date: 20210113
  Serious: Yes (Hospitalization, Other)
  Sender: FDA-Public Use
  Company Number: US-PFIZER INC-2015330917

PATIENT
  Age: 70 Year
  Sex: Male
  Weight: 65 kg

DRUGS (8)
  1. REVATIO [Suspect]
     Active Substance: SILDENAFIL CITRATE
     Dosage: 40 MG (TWO TABLETS), THREE TIMES A DAY
     Route: 048
  2. REVATIO [Suspect]
     Active Substance: SILDENAFIL CITRATE
     Dosage: 40 MG, 3X/DAY (2 TABLETS 3 TIMES DAILY)
     Route: 048
     Dates: start: 20171206
  3. REVATIO [Suspect]
     Active Substance: SILDENAFIL CITRATE
     Dosage: 20 MG, UNK
  4. REVATIO [Suspect]
     Active Substance: SILDENAFIL CITRATE
     Indication: PULMONARY HYPERTENSION
     Dosage: UNK
     Route: 048
     Dates: start: 2004
  5. REVATIO [Suspect]
     Active Substance: SILDENAFIL CITRATE
     Dosage: 40 MG (TWO TABLETS), THREE TIMES A DAY
     Route: 048
  6. REVATIO [Suspect]
     Active Substance: SILDENAFIL CITRATE
     Dosage: 40 MG, 3X/DAY (2 TABLETS 3 TIMES DAILY)
     Route: 048
     Dates: start: 200312
  7. REVATIO [Suspect]
     Active Substance: SILDENAFIL CITRATE
     Dosage: 40 MG (TWO TABLETS), THREE TIMES A DAY
     Route: 048
  8. REVATIO [Suspect]
     Active Substance: SILDENAFIL CITRATE
     Dosage: 40 MG TWICE DAILY

REACTIONS (9)
  - Acute kidney injury [Recovered/Resolved]
  - Condition aggravated [Unknown]
  - Hypoacusis [Unknown]
  - Product use issue [Unknown]
  - Cardiac disorder [Unknown]
  - Weight increased [Unknown]
  - Fluid retention [Recovered/Resolved]
  - Cardiac failure congestive [Recovered/Resolved]
  - Off label use [Unknown]

NARRATIVE: CASE EVENT DATE: 201608
